FAERS Safety Report 5105085-5 (Version None)
Quarter: 2006Q3

REPORT INFORMATION
  Report Type: 
  Country: None (occurrence: None)
  Receive Date: 20060911
  Receipt Date: 20060829
  Transmission Date: 20061208
  Serious: Yes (Disabling)
  Sender: FDA-Public Use
  Company Number: USA-2006-0023751

PATIENT
  Sex: Male
  Weight: 104.3 kg

DRUGS (1)
  1. OXYCONTIN TABLETS (OXYCODONE) HYDROCHLORIDE) PROLONGED-REELEASE TABLET [Suspect]
     Indication: PAIN
     Dosage: 20 MG, Q12H, ORAL
     Route: 048

REACTIONS (1)
  - DEAFNESS [None]
